FAERS Safety Report 20088750 (Version 4)
Quarter: 2022Q3

REPORT INFORMATION
  Report Type: Report from Study
  Country: US (occurrence: US)
  Receive Date: 20211119
  Receipt Date: 20220708
  Transmission Date: 20221026
  Serious: No
  Sender: FDA-Public Use
  Company Number: US-NOVARTISTESTPH-NVSC2021US264520

PATIENT
  Age: 74 Year
  Sex: Male

DRUGS (3)
  1. ENTRESTO [Suspect]
     Active Substance: SACUBITRIL\VALSARTAN
     Indication: Product used for unknown indication
     Dosage: 0.5 DF, BID (1/2 TAB IN MORNING AND 1/2 TAB. IN EVENING)
     Route: 048
     Dates: start: 202107
  2. ENTRESTO [Suspect]
     Active Substance: SACUBITRIL\VALSARTAN
     Dosage: 1 DF, BID (1 TAB. IN MORNING AND 1 TAB. IN EVENING)
     Route: 048
  3. ENTRESTO [Suspect]
     Active Substance: SACUBITRIL\VALSARTAN
     Dosage: 1 DOSAGE FORM (1/2 TABLET MORNING AND 1/2 TABLET)
     Route: 048

REACTIONS (5)
  - Weight decreased [Unknown]
  - Rhinorrhoea [Unknown]
  - Eye disorder [Unknown]
  - Blood pressure decreased [Unknown]
  - Wrong technique in product usage process [Unknown]

NARRATIVE: CASE EVENT DATE: 20210701
